FAERS Safety Report 7288052-5 (Version None)
Quarter: 2011Q1

REPORT INFORMATION
  Report Type: 
  Country: None (occurrence: None)
  Receive Date: 20110211
  Receipt Date: 20110203
  Transmission Date: 20110831
  Serious: Yes (Other)
  Sender: FDA-Public Use
  Company Number: PHHY2011US08449

PATIENT
  Sex: Female

DRUGS (1)
  1. RECLAST [Suspect]
     Dosage: UNK

REACTIONS (7)
  - CONVULSION [None]
  - LIMB DISCOMFORT [None]
  - SPEECH DISORDER [None]
  - UPPER LIMB FRACTURE [None]
  - AMNESIA [None]
  - MEMORY IMPAIRMENT [None]
  - EATING DISORDER [None]
